FAERS Safety Report 10421287 (Version 2)
Quarter: 2014Q3

REPORT INFORMATION
  Report Type: Report from Study
  Country: GB (occurrence: GB)
  Receive Date: 20140831
  Receipt Date: 20140831
  Transmission Date: 20150326
  Serious: Yes (Death, Congenital Anomaly, Other)
  Sender: FDA-Public Use
  Company Number: GB-AUROBINDO-AUR-APL-2013-07872

PATIENT
  Sex: Female
  Weight: 2.2 kg

DRUGS (17)
  1. ZIDOVUDINE CAPSULES 100MG [Suspect]
     Active Substance: ZIDOVUDINE
     Indication: ANTIVIRAL PROPHYLAXIS
     Dosage: UNK UNK,UNK,
     Route: 064
     Dates: start: 20070605, end: 20081023
  2. PREZISTA [Suspect]
     Active Substance: DARUNAVIR ETHANOLATE
     Indication: HIV INFECTION
     Dosage: 600 MG,TWO TIMES A DAY,
     Route: 064
     Dates: start: 20081023
  3. NOVORAPID [Concomitant]
     Active Substance: INSULIN ASPART
     Indication: GESTATIONAL DIABETES
     Dosage: UNK UNK,UNK,
     Route: 064
  4. INTELENCE [Suspect]
     Active Substance: ETRAVIRINE
     Dosage: 500 MG,TWO TIMES A DAY,
     Route: 064
  5. ISENTRESS [Suspect]
     Active Substance: RALTEGRAVIR POTASSIUM
     Dosage: 400 MG,TWO TIMES A DAY,
     Route: 064
     Dates: start: 20081023, end: 20090221
  6. INTELENCE [Suspect]
     Active Substance: ETRAVIRINE
     Dosage: 400 MG,ONCE A DAY,
     Route: 064
  7. NORVIR [Suspect]
     Active Substance: RITONAVIR
     Indication: HIV INFECTION
     Dosage: 400 MG,ONCE A DAY,
     Route: 064
  8. INSULIN [Concomitant]
     Active Substance: INSULIN NOS
     Indication: GESTATIONAL DIABETES
     Dosage: UNK UNK,UNK,`
     Route: 064
  9. ISENTRESS [Suspect]
     Active Substance: RALTEGRAVIR POTASSIUM
     Indication: HIV INFECTION
     Dosage: 800 MG,ONCE A DAY,
     Route: 064
  10. ISENTRESS [Suspect]
     Active Substance: RALTEGRAVIR POTASSIUM
     Dosage: 200 MG,TWO TIMES A DAY,
     Route: 064
  11. NORVIR [Suspect]
     Active Substance: RITONAVIR
     Dosage: 100 MG,TWO TIMES A DAY,
     Route: 064
     Dates: start: 20060906, end: 20081023
  12. INTELENCE [Suspect]
     Active Substance: ETRAVIRINE
     Indication: HIV INFECTION
     Dosage: 1000 MG,ONCE A DAY,
     Route: 064
     Dates: start: 20081023
  13. INTELENCE [Suspect]
     Active Substance: ETRAVIRINE
     Dosage: 200 MG,TWO TIMES A DAY,
     Route: 064
     Dates: end: 20081023
  14. NORVIR [Suspect]
     Active Substance: RITONAVIR
     Dosage: 200 MG,ONCE A DAY,
     Route: 064
     Dates: start: 20081023
  15. TRUVADA [Suspect]
     Active Substance: EMTRICITABINE\TENOFOVIR DISOPROXIL FUMARATE
     Indication: HIV INFECTION
     Dosage: UNK UNK,UNK,
     Route: 064
     Dates: start: 20070605, end: 20081023
  16. PREDNISOLONE. [Concomitant]
     Active Substance: PREDNISOLONE
     Indication: PRODUCT USED FOR UNKNOWN INDICATION
     Dosage: 25 MG,UNK,
     Route: 064
  17. APTIVUS [Suspect]
     Active Substance: TIPRANAVIR
     Indication: HIV INFECTION
     Dosage: 500 MG,TWO TIMES A DAY,
     Route: 064
     Dates: start: 20060905, end: 20081023

REACTIONS (25)
  - Congenital generalised lipodystrophy [Unknown]
  - Blood iron decreased [Unknown]
  - Cloacal exstrophy [Unknown]
  - Erythema [Unknown]
  - Premature baby [Unknown]
  - Sepsis neonatal [Unknown]
  - Neural tube defect [Unknown]
  - Exomphalos [Unknown]
  - Spine malformation [Unknown]
  - Caudal regression syndrome [Unknown]
  - Anal atresia [Unknown]
  - Meningomyelocele [Unknown]
  - Musculoskeletal discomfort [Recovered/Resolved]
  - Congenital anomaly [Unknown]
  - Congenital genital malformation [Unknown]
  - Foetal exposure during pregnancy [Unknown]
  - Spina bifida [Unknown]
  - Aspartate aminotransferase increased [Unknown]
  - Gastrointestinal malformation [Unknown]
  - Genitalia external ambiguous [Unknown]
  - Meconium stain [Unknown]
  - Umbilical cord abnormality [Unknown]
  - Bladder agenesis [Unknown]
  - Tethered cord syndrome [Unknown]
  - Gastrointestinal disorder congenital [Unknown]
